FAERS Safety Report 16121145 (Version 1)
Quarter: 2019Q1

REPORT INFORMATION
  Report Type: Spontaneous
  Country: CZ (occurrence: CZ)
  Receive Date: 20190327
  Receipt Date: 20190327
  Transmission Date: 20190418
  Serious: Yes (Other)
  Sender: FDA-Public Use
  Company Number: CZ-TEVA-2019-CZ-1031581

PATIENT
  Age: 62 Year
  Sex: Female
  Weight: 72 kg

DRUGS (18)
  1. ALOXI [Concomitant]
     Active Substance: PALONOSETRON HYDROCHLORIDE
     Indication: PREMEDICATION
     Route: 048
     Dates: start: 20131125
  2. FORTECORTIN [Concomitant]
     Active Substance: DEXAMETHASONE
     Indication: PREMEDICATION
     Route: 048
     Dates: start: 20151125
  3. NOVETRON [Concomitant]
     Indication: PROPHYLAXIS OF NAUSEA AND VOMITING
     Route: 048
     Dates: start: 20151125
  4. ZOFRAN [Concomitant]
     Active Substance: ONDANSETRON HYDROCHLORIDE
     Indication: PREMEDICATION
     Route: 041
     Dates: start: 20151202
  5. SOLIFENACIN ACTAVIS [Concomitant]
     Indication: POLLAKIURIA
     Dosage: 10 MILLIGRAM DAILY;
     Route: 048
     Dates: start: 20150401
  6. ZARZIO 48 MU [Concomitant]
     Indication: NEUTROPENIA
     Route: 058
     Dates: start: 20151224
  7. DOXORUBICIN [Suspect]
     Active Substance: DOXORUBICIN
     Indication: TRIPLE NEGATIVE BREAST CANCER
     Dosage: LAST DOSE PRIOR TO AE: 27-APR-2016
     Route: 042
     Dates: start: 20160309, end: 20160427
  8. PACLITAXEL. [Suspect]
     Active Substance: PACLITAXEL
     Indication: TRIPLE NEGATIVE BREAST CANCER
     Route: 042
     Dates: start: 20151125, end: 20151202
  9. SYMBICORT [Concomitant]
     Active Substance: BUDESONIDE\FORMOTEROL FUMARATE DIHYDRATE
     Indication: ASTHMA
     Route: 065
     Dates: start: 20140101
  10. DITHIADEN [Concomitant]
     Active Substance: BISULEPIN
     Indication: PREMEDICATION
     Route: 040
     Dates: start: 20151125
  11. CYCLOPHOSPHAMIDE. [Suspect]
     Active Substance: CYCLOPHOSPHAMIDE
     Indication: TRIPLE NEGATIVE BREAST CANCER
     Dosage: LAST DOSE PRIOR TO AE: 27-APR-2016
     Route: 042
     Dates: start: 20160309, end: 20160427
  12. DASSELTA [Concomitant]
     Active Substance: DESLORATADINE
     Indication: HYPERSENSITIVITY
     Route: 048
     Dates: start: 20160407
  13. SPERSALERG [Concomitant]
     Indication: HYPERSENSITIVITY
     Route: 047
     Dates: start: 20160407
  14. RANITIDINE. [Concomitant]
     Active Substance: RANITIDINE
     Indication: PREMEDICATION
     Route: 041
     Dates: start: 20151125
  15. PACLITAXEL. [Suspect]
     Active Substance: PACLITAXEL
     Route: 042
     Dates: start: 20151223, end: 20151230
  16. CARBOPLATIN. [Suspect]
     Active Substance: CARBOPLATIN
     Dosage: LAST DOSE PRIOR TO AE: 17-FEB-2016
     Route: 042
     Dates: start: 20151125, end: 20160217
  17. PACLITAXEL. [Suspect]
     Active Substance: PACLITAXEL
     Route: 042
     Dates: start: 20160120, end: 20160302
  18. DEXAMED [Concomitant]
     Indication: PREMEDICATION
     Route: 041
     Dates: start: 20151125

REACTIONS (1)
  - Acute myeloid leukaemia [Recovered/Resolved]

NARRATIVE: CASE EVENT DATE: 20170227
